FAERS Safety Report 4924210-X (Version None)
Quarter: 2006Q1

REPORT INFORMATION
  Report Type: 
  Country: None (occurrence: None)
  Receive Date: 20060227
  Receipt Date: 20051215
  Transmission Date: 20060701
  Serious: Yes (Other)
  Sender: FDA-Public Use
  Company Number: US-GLAXOSMITHKLINE-A0586068A

PATIENT
  Age: 37 Year
  Sex: Female
  Weight: 65.9 kg

DRUGS (1)
  1. WELLBUTRIN XL [Suspect]
     Dosage: 150MG PER DAY
     Route: 048

REACTIONS (5)
  - ADVERSE EVENT [None]
  - EYE SWELLING [None]
  - RASH [None]
  - SWELLING FACE [None]
  - URTICARIA [None]
